FAERS Safety Report 9089139 (Version 4)
Quarter: 2013Q3

REPORT INFORMATION
  Report Type: Report from Study
  Country: ES (occurrence: ES)
  Receive Date: 20130201
  Receipt Date: 20130924
  Transmission Date: 20140515
  Serious: Yes (Hospitalization, Other)
  Sender: FDA-Public Use
  Company Number: ES-TEVA-383488USA

PATIENT
  Age: 69 Year
  Sex: Male

DRUGS (11)
  1. BENDAMUSTINE [Suspect]
     Indication: B-CELL LYMPHOMA
     Route: 042
     Dates: start: 20110718
  2. RITUXIMAB [Suspect]
     Indication: B-CELL LYMPHOMA
     Dates: start: 20110718
  3. MITOXANTRONE [Suspect]
     Indication: B-CELL LYMPHOMA
     Dates: start: 20110718
  4. DEXAMETHASONE [Suspect]
     Indication: B-CELL LYMPHOMA
     Dates: start: 20110718
  5. PARACETAMOL [Concomitant]
  6. IBUPROFEN [Concomitant]
  7. AZITHROMYCIN [Concomitant]
  8. CORTICOSTEROID NOS [Concomitant]
  9. FLUTOX [Concomitant]
  10. PERFALGAN [Concomitant]
  11. IMIPENEM [Concomitant]

REACTIONS (2)
  - Acute pulmonary oedema [Recovered/Resolved]
  - Infection [Recovered/Resolved]
